FAERS Safety Report 5129901-6 (Version None)
Quarter: 2006Q4

REPORT INFORMATION
  Report Type: 
  Country: None (occurrence: None)
  Receive Date: 20061012
  Receipt Date: 20060905
  Transmission Date: 20070319
  Serious: Yes (Hospitalization)
  Sender: FDA-Public Use
  Company Number: 2006SP000657

PATIENT
  Age: 60 Year
  Sex: Female
  Weight: 73 kg

DRUGS (4)
  1. PEG-INTRON [Suspect]
     Indication: HEPATITIS C
     Dosage: 120 MCG; QW; SC
     Route: 058
     Dates: start: 20060508, end: 20060828
  2. REBETOL [Suspect]
     Indication: HEPATITIS C
     Dosage: 1000 MG; QD; PO
     Route: 048
     Dates: start: 20060508, end: 20060904
  3. SYMMETREL (CON.) [Concomitant]
  4. MUCOSOLVAN (CON.) [Concomitant]

REACTIONS (9)
  - ANOREXIA [None]
  - ASTHENIA [None]
  - BLOOD THYROID STIMULATING HORMONE INCREASED [None]
  - GAIT DISTURBANCE [None]
  - HEART RATE INCREASED [None]
  - NAUSEA [None]
  - PLATELET COUNT DECREASED [None]
  - TREMOR [None]
  - WHITE BLOOD CELL COUNT DECREASED [None]
